FAERS Safety Report 11864992 (Version 2)
Quarter: 2017Q1

REPORT INFORMATION
  Report Type: Spontaneous
  Country: US (occurrence: US)
  Receive Date: 20151223
  Receipt Date: 20170316
  Transmission Date: 20170428
  Serious: Yes (Death, Hospitalization)
  Sender: FDA-Public Use
  Company Number: US-LUNDBECK-DKLU2008155

PATIENT
  Age: 93 Year
  Sex: Male

DRUGS (2)
  1. NORTHERA [Suspect]
     Active Substance: DROXIDOPA
     Indication: AUTONOMIC NEUROPATHY
     Dosage: GIVE 200 MG IN ADDITION TO THE 300 MG TID
     Route: 048
     Dates: start: 20160725, end: 20170209
  2. NORTHERA [Suspect]
     Active Substance: DROXIDOPA
     Dosage: GIVE 300 MG IN ADDITION TO THE 200 MG TID
     Route: 048
     Dates: start: 20160725, end: 20170209

REACTIONS (2)
  - Ventricular tachycardia [Unknown]
  - Cardiac failure congestive [Fatal]

NARRATIVE: CASE EVENT DATE: 20170209
